FAERS Safety Report 24219626 (Version 4)
Quarter: 2024Q3

REPORT INFORMATION
  Report Type: Spontaneous
  Country: US (occurrence: US)
  Receive Date: 20240817
  Receipt Date: 20240830
  Transmission Date: 20241016
  Serious: Yes (Disabling)
  Sender: ROCHE
  Company Number: US-ROCHE-10000058124

PATIENT
  Sex: Female

DRUGS (2)
  1. VABYSMO [Suspect]
     Active Substance: FARICIMAB\FARICIMAB-SVOA
     Indication: Neovascular age-related macular degeneration
     Route: 065
     Dates: start: 202404
  2. AVASTIN [Suspect]
     Active Substance: BEVACIZUMAB
     Indication: Neovascular age-related macular degeneration
     Route: 065
     Dates: start: 2019

REACTIONS (3)
  - Blindness [Not Recovered/Not Resolved]
  - Eye pain [Unknown]
  - Off label use [Unknown]

NARRATIVE: CASE EVENT DATE: 20240527
